FAERS Safety Report 12230637 (Version 1)
Quarter: 2016Q2

REPORT INFORMATION
  Report Type: Spontaneous
  Country: DE (occurrence: DE)
  Receive Date: 20160401
  Receipt Date: 20160401
  Transmission Date: 20160815
  Serious: Yes (Other)
  Sender: FDA-Public Use
  Company Number: GXKR2016DE001685

PATIENT
  Age: 67 Year
  Sex: Female

DRUGS (1)
  1. ESTRAMON CONTI [Suspect]
     Active Substance: ESTRADIOL\NORETHINDRONE ACETATE
     Indication: MENOPAUSAL SYMPTOMS
     Dosage: 1 DF, QW2
     Route: 062

REACTIONS (1)
  - Postmenopausal haemorrhage [Unknown]
